FAERS Safety Report 18054685 (Version 1)
Quarter: 2020Q3

REPORT INFORMATION
  Report Type: Spontaneous
  Country: US (occurrence: US)
  Receive Date: 20200721
  Receipt Date: 20200721
  Transmission Date: 20201103
  Serious: No
  Sender: FDA-Public Use
  Company Number: None

PATIENT
  Sex: Female

DRUGS (1)
  1. PAW PATROL HAND SANITIZER [Suspect]
     Active Substance: ALCOHOL

REACTIONS (2)
  - Product packaging issue [None]
  - Recalled product [None]
